FAERS Safety Report 18281468 (Version 1)
Quarter: 2020Q3

REPORT INFORMATION
  Report Type: Spontaneous
  Country: US (occurrence: US)
  Receive Date: 20200918
  Receipt Date: 20200918
  Transmission Date: 20201103
  Serious: No
  Sender: FDA-Public Use
  Company Number: US-SA-2020SA255507

PATIENT

DRUGS (1)
  1. AUBAGIO [Suspect]
     Active Substance: TERIFLUNOMIDE
     Dosage: UNK

REACTIONS (6)
  - Nausea [Unknown]
  - Unevaluable event [Unknown]
  - Hypokinesia [Unknown]
  - Hypoaesthesia [Unknown]
  - Dizziness [Unknown]
  - Blood pressure abnormal [Unknown]
